FAERS Safety Report 4732049-3 (Version None)
Quarter: 2005Q3

REPORT INFORMATION
  Report Type: 
  Country: None (occurrence: None)
  Receive Date: 20050722
  Receipt Date: 20040927
  Transmission Date: 20060218
  Serious: Yes (Life-Threatening)
  Sender: FDA-Public Use
  Company Number: 2004SP000224

PATIENT
  Age: 80 Year
  Sex: Male

DRUGS (4)
  1. XOPENEX [Suspect]
     Indication: DYSPNOEA
     Dosage: 1.25 MG/3ML;1X;INHALATION
     Route: 055
     Dates: start: 20040601, end: 20040601
  2. IPRATROPIUM BROMIDE [Concomitant]
  3. RACEMIC ALBUTEROL [Concomitant]
  4. PREDNISOLONE [Concomitant]

REACTIONS (1)
  - BRONCHOSPASM PARADOXICAL [None]
